FAERS Safety Report 4846095-2 (Version None)
Quarter: 2005Q4

REPORT INFORMATION
  Report Type: 
  Country: None (occurrence: None)
  Receive Date: 20051130
  Receipt Date: 20051024
  Transmission Date: 20060501
  Serious: Yes (Other)
  Sender: FDA-Public Use
  Company Number: 2005BH001024

PATIENT
  Age: 46 Year
  Sex: Female

DRUGS (1)
  1. LACTATED RINGERS INJECTION IN PLASTIC CONTAINERS [Suspect]
     Indication: DRUG USE FOR UNKNOWN INDICATION
     Dosage: IV
     Route: 042
     Dates: start: 20050801, end: 20050801

REACTIONS (1)
  - DRUG HYPERSENSITIVITY [None]
